FAERS Safety Report 6997032-6 (Version None)
Quarter: 2010Q3

REPORT INFORMATION
  Report Type: 
  Country: None (occurrence: None)
  Receive Date: 20100918
  Receipt Date: 20090902
  Transmission Date: 20110219
  Serious: No
  Sender: FDA-Public Use
  Company Number: US-WYE-H10830609

PATIENT
  Sex: Female
  Weight: 63.56 kg

DRUGS (3)
  1. PRISTIQ [Suspect]
     Indication: DEPRESSION
     Route: 048
     Dates: start: 20090831
  2. DIOVAN [Concomitant]
  3. LIPITOR [Concomitant]

REACTIONS (3)
  - CHAPPED LIPS [None]
  - DRY MOUTH [None]
  - DRY THROAT [None]
